FAERS Safety Report 4759058-2 (Version None)
Quarter: 2005Q3

REPORT INFORMATION
  Report Type: 
  Country: None (occurrence: None)
  Receive Date: 20050826
  Receipt Date: 20050810
  Transmission Date: 20060218
  Serious: Yes (Other)
  Sender: FDA-Public Use
  Company Number: PHBS2005US11686

PATIENT
  Age: 93 Year
  Sex: Male

DRUGS (4)
  1. VISUDYNE [Suspect]
     Indication: CHOROIDAL NEOVASCULARISATION
  2. VISUDYNE [Suspect]
     Indication: MACULAR DEGENERATION
  3. TRIAMCINOLONE ACETONIDE [Suspect]
     Indication: CHOROIDAL NEOVASCULARISATION
  4. TRIAMCINOLONE ACETONIDE [Suspect]
     Indication: MACULAR DEGENERATION

REACTIONS (3)
  - CHOROIDAL INFARCTION [None]
  - RETINAL PIGMENTATION [None]
  - VISUAL ACUITY REDUCED [None]
